FAERS Safety Report 10459181 (Version 1)
Quarter: 2014Q3

REPORT INFORMATION
  Report Type: Spontaneous
  Country: SK (occurrence: SK)
  Receive Date: 20140917
  Receipt Date: 20140917
  Transmission Date: 20150326
  Serious: Yes (Hospitalization, Other)
  Sender: FDA-Public Use
  Company Number: SK-ACTAVIS-2014-19818

PATIENT
  Age: 14 Year
  Sex: Female

DRUGS (1)
  1. IBUPROFEN. [Suspect]
     Active Substance: IBUPROFEN
     Indication: SUICIDE ATTEMPT
     Dosage: 48 DF, SINGLE
     Route: 048

REACTIONS (5)
  - Suicide attempt [Unknown]
  - Vomiting [Unknown]
  - Somnolence [Unknown]
  - Transaminases increased [Unknown]
  - Intentional overdose [Unknown]
